FAERS Safety Report 21789791 (Version 1)
Quarter: 2022Q4

REPORT INFORMATION
  Report Type: Spontaneous
  Country: US (occurrence: US)
  Receive Date: 20221228
  Receipt Date: 20221228
  Transmission Date: 20230113
  Serious: Yes (Death, Other)
  Sender: FDA-Public Use
  Company Number: US-PFIZER INC-202201393388

PATIENT
  Age: 85 Year
  Sex: Male
  Weight: 63.96 kg

DRUGS (3)
  1. VYNDAMAX [Suspect]
     Active Substance: TAFAMIDIS
     Indication: Cardiac amyloidosis
     Dosage: 61 MG, 1X/DAY
     Route: 048
  2. ELIQUIS [Concomitant]
     Active Substance: APIXABAN
     Indication: Atrial fibrillation
     Dosage: 5 MG, 2X/DAY
     Dates: start: 2018
  3. COQ10 [ASCORBIC ACID;BETACAROTENE;CUPRIC OXIDE;MANGANESE SULFATE;SELEN [Concomitant]
     Dosage: UNK

REACTIONS (5)
  - Cardiac failure congestive [Fatal]
  - Acute respiratory failure [Fatal]
  - Hypoxia [Fatal]
  - Cardiac amyloidosis [Fatal]
  - Pleural effusion [Fatal]

NARRATIVE: CASE EVENT DATE: 20221106
